FAERS Safety Report 6158160-0 (Version None)
Quarter: 2009Q2

REPORT INFORMATION
  Report Type: 
  Country: None (occurrence: None)
  Receive Date: 20090417
  Receipt Date: 20090317
  Transmission Date: 20091009
  Serious: No
  Sender: FDA-Public Use
  Company Number: US-BAYER-200916033NA

PATIENT
  Sex: Female

DRUGS (1)
  1. MENOSTAR [Suspect]
     Indication: HOT FLUSH
     Route: 061

REACTIONS (1)
  - DRUG INEFFECTIVE FOR UNAPPROVED INDICATION [None]
